FAERS Safety Report 8274047-1 (Version None)
Quarter: 2012Q2

REPORT INFORMATION
  Report Type: 
  Country: None (occurrence: None)
  Receive Date: 20120409
  Receipt Date: 20120327
  Transmission Date: 20120825
  Serious: Yes (Hospitalization)
  Sender: FDA-Public Use
  Company Number: JPI-P-020460

PATIENT
  Age: 59 Year
  Sex: Female

DRUGS (5)
  1. XYREM [Suspect]
     Indication: NARCOLEPSY
     Dosage: 6 GM (6 GM 2 IN 1 D) , ORAL
     Route: 048
     Dates: start: 20050311
  2. SERTRALINE HYDROCHLORIDE [Concomitant]
  3. ZIPRASIDONE HYDROCHLORIDE [Concomitant]
  4. TOPIRAMATE [Concomitant]
  5. HALOPERIDOL [Concomitant]

REACTIONS (1)
  - MENTAL DISORDER [None]
